FAERS Safety Report 25876402 (Version 3)
Quarter: 2025Q4

REPORT INFORMATION
  Report Type: Report from Study
  Country: US (occurrence: US)
  Receive Date: 20251003
  Receipt Date: 20251017
  Transmission Date: 20260117
  Serious: Yes (Other)
  Sender: MALLINCKRODT
  Company Number: US-MALLINCKRODT-MNK202506085

PATIENT
  Age: 66 Year
  Sex: Male

DRUGS (5)
  1. CORTICOTROPIN [Suspect]
     Active Substance: CORTICOTROPIN
     Indication: Sarcoidosis
     Route: 058
  2. CORTICOTROPIN [Suspect]
     Active Substance: CORTICOTROPIN
     Indication: Pulmonary sarcoidosis
  3. CRESTOR [Suspect]
     Active Substance: ROSUVASTATIN CALCIUM
     Indication: Low density lipoprotein increased
     Dosage: UNKNOWN
     Dates: start: 202508
  4. ASPIRIN [Concomitant]
     Active Substance: ASPIRIN
     Dosage: UNKNOWN
  5. XANAX [Concomitant]
     Active Substance: ALPRAZOLAM
     Dosage: UNKNOWN

REACTIONS (10)
  - Sarcoidosis [Unknown]
  - Condition aggravated [Unknown]
  - Ocular sarcoidosis [Unknown]
  - Sarcoidosis of lymph node [Unknown]
  - Adverse event [Unknown]
  - Influenza like illness [Recovering/Resolving]
  - Arthralgia [Unknown]
  - Headache [Unknown]
  - Depression [Unknown]
  - Therapeutic response shortened [Unknown]

NARRATIVE: CASE EVENT DATE: 20250101
